FAERS Safety Report 16960286 (Version 1)
Quarter: 2019Q4

REPORT INFORMATION
  Report Type: Spontaneous
  Country: US (occurrence: US)
  Receive Date: 20191025
  Receipt Date: 20191025
  Transmission Date: 20200122
  Serious: Yes (Other)
  Sender: FDA-Public Use
  Company Number: US-PFIZER INC-2019457436

PATIENT
  Sex: Female

DRUGS (1)
  1. ZOLOFT [Suspect]
     Active Substance: SERTRALINE HYDROCHLORIDE
     Dosage: UNK

REACTIONS (6)
  - Anxiety [Unknown]
  - Suicidal ideation [Unknown]
  - Amnesia [Unknown]
  - Ear pain [Unknown]
  - Asthenia [Unknown]
  - Loss of personal independence in daily activities [Unknown]
